FAERS Safety Report 6341543-3 (Version None)
Quarter: 2009Q3

REPORT INFORMATION
  Report Type: 
  Country: None (occurrence: None)
  Receive Date: 20090904
  Receipt Date: 20090902
  Transmission Date: 20100115
  Serious: Yes (Hospitalization, Other)
  Sender: FDA-Public Use
  Company Number: TR-ROXANE LABORATORIES, INC.-2009-RO-00887RO

PATIENT
  Age: 59 Year
  Sex: Male
  Weight: 75 kg

DRUGS (3)
  1. DIGOXIN [Suspect]
     Indication: POSTOPERATIVE CARE
  2. SPIRONOLACTONE [Suspect]
     Indication: DIURETIC THERAPY
  3. SERTRALINE HCL [Concomitant]
     Indication: DEPRESSION
     Dosage: 100 MG

REACTIONS (9)
  - BEREAVEMENT REACTION [None]
  - BLOOD OESTROGEN INCREASED [None]
  - BLOOD PROLACTIN INCREASED [None]
  - DEPRESSION [None]
  - ERECTILE DYSFUNCTION [None]
  - GYNAECOMASTIA [None]
  - OEDEMA [None]
  - SUICIDAL IDEATION [None]
  - TRANS-SEXUALISM [None]
